FAERS Safety Report 4844776-8 (Version None)
Quarter: 2005Q4

REPORT INFORMATION
  Report Type: 
  Country: None (occurrence: None)
  Receive Date: 20051205
  Receipt Date: 20051123
  Transmission Date: 20060501
  Serious: Yes (Hospitalization)
  Sender: FDA-Public Use
  Company Number: AU-BRISTOL-MYERS SQUIBB COMPANY-13192422

PATIENT
  Age: 40 Year
  Sex: Female

DRUGS (4)
  1. ABILIFY [Suspect]
     Indication: SCHIZOPHRENIA
     Dosage: DURATION: SHORT TERM
     Route: 048
  2. CITALOPRAM HYDROBROMIDE [Concomitant]
     Indication: DEPRESSION
     Dates: start: 20021215
  3. EPILIM [Concomitant]
     Indication: SCHIZOPHRENIA
     Route: 048
     Dates: start: 20021215
  4. FGF [Concomitant]
     Dosage: DURATION: SHORT TERM

REACTIONS (3)
  - DYSKINESIA [None]
  - FACIAL PARESIS [None]
  - VISION BLURRED [None]
